FAERS Safety Report 22803064 (Version 2)
Quarter: 2023Q4

REPORT INFORMATION
  Report Type: Report from Study
  Country: US (occurrence: US)
  Receive Date: 20230809
  Receipt Date: 20231206
  Transmission Date: 20240110
  Serious: No
  Sender: FDA-Public Use
  Company Number: US-002147023-NVSC2023US173338

PATIENT
  Age: 4 Year
  Sex: Female

DRUGS (1)
  1. ILARIS [Suspect]
     Active Substance: CANAKINUMAB
     Indication: Juvenile idiopathic arthritis
     Dosage: 75 MG, QMO
     Route: 058
     Dates: start: 20230710

REACTIONS (3)
  - Pain [Unknown]
  - Irritability [Unknown]
  - COVID-19 [Unknown]

NARRATIVE: CASE EVENT DATE: 20230808
